FAERS Safety Report 22072053 (Version 1)
Quarter: 2023Q1

REPORT INFORMATION
  Report Type: Other
  Country: CN (occurrence: None)
  Receive Date: 20230308
  Receipt Date: 20230308
  Transmission Date: 20230418
  Serious: Yes (Other)
  Sender: FDA-Public Use
  Company Number: CN-ROCHE-3300709

PATIENT
  Age: 52 Year
  Sex: Female

DRUGS (8)
  1. CAPECITABINE [Suspect]
     Active Substance: CAPECITABINE
     Indication: Breast cancer metastatic
     Dosage: FOR 14 DAYS
     Route: 048
     Dates: start: 2020
  2. PALBOCICLIB [Concomitant]
     Active Substance: PALBOCICLIB
     Dosage: FOR 21 DAYS
  3. LETROZOLE [Concomitant]
     Active Substance: LETROZOLE
     Dosage: FOR 28 DAYS
     Route: 048
  4. AMINOCAPROIC ACID [Concomitant]
     Active Substance: AMINOCAPROIC ACID
  5. ERIBULIN [Concomitant]
     Active Substance: ERIBULIN
     Dosage: ON DAY 1 AND 8, EVERY 3 WEEKS
  6. FULVESTRANT [Concomitant]
     Active Substance: FULVESTRANT
     Dosage: EVERY 4 WEEKS AFTER AN INITIAL 2 WEEK INDUCTION
     Route: 030
     Dates: start: 202102
  7. FIBRINOGEN [Concomitant]
     Active Substance: FIBRINOGEN HUMAN
     Route: 042
  8. THROMBOPOIETIN [Concomitant]
     Active Substance: THROMBOPOIETIN

REACTIONS (2)
  - Metastases to bone marrow [Unknown]
  - Disease progression [Unknown]
